FAERS Safety Report 4654903-3 (Version None)
Quarter: 2005Q2

REPORT INFORMATION
  Report Type: 
  Country: None (occurrence: None)
  Receive Date: 20050506
  Receipt Date: 20040311
  Transmission Date: 20051028
  Serious: No
  Sender: FDA-Public Use
  Company Number: 04-03-0357

PATIENT
  Age: 53 Year
  Sex: Female

DRUGS (3)
  1. AMOXICILLIN [Suspect]
     Indication: DRUG USE FOR UNKNOWN INDICATION
     Route: 065
  2. NITROFURANTOIN [Suspect]
     Indication: URINE URIC ACID ABNORMAL
     Dosage: 100MG PER DAY
     Route: 048
  3. BICITRA [Suspect]
     Indication: URINE URIC ACID ABNORMAL
     Route: 048
     Dates: end: 20040310

REACTIONS (5)
  - BLISTER [None]
  - DISORIENTATION [None]
  - HEADACHE [None]
  - HYPERSENSITIVITY [None]
  - RASH [None]
